FAERS Safety Report 19139152 (Version 2)
Quarter: 2021Q2

REPORT INFORMATION
  Report Type: Spontaneous
  Country: US (occurrence: US)
  Receive Date: 20210415
  Receipt Date: 20210513
  Transmission Date: 20210717
  Serious: No
  Sender: FDA-Public Use
  Company Number: US-ASTRAZENECA-2021A174984

PATIENT
  Age: 825 Month
  Sex: Male
  Weight: 113.4 kg

DRUGS (1)
  1. FASENRA [Suspect]
     Active Substance: BENRALIZUMAB
     Route: 058
     Dates: start: 201908

REACTIONS (1)
  - Tooth injury [Not Recovered/Not Resolved]

NARRATIVE: CASE EVENT DATE: 20210210
